FAERS Safety Report 18523661 (Version 2)
Quarter: 2020Q4

REPORT INFORMATION
  Report Type: Report from Study
  Country: CA (occurrence: CA)
  Receive Date: 20201119
  Receipt Date: 20201202
  Transmission Date: 20210114
  Serious: Yes (Hospitalization)
  Sender: FDA-Public Use
  Company Number: CA-JNJFOC-20201129151

PATIENT
  Sex: Female

DRUGS (9)
  1. FUROSEMIDE. [Concomitant]
     Active Substance: FUROSEMIDE
  2. MACITENTAN [Suspect]
     Active Substance: MACITENTAN
     Indication: PULMONARY HYPERTENSION
     Route: 065
  3. ACETYLSALICYLIC ACID [Concomitant]
     Active Substance: ASPIRIN
  4. SYNTHROID [Concomitant]
     Active Substance: LEVOTHYROXINE SODIUM
  5. DILTIAZEM. [Concomitant]
     Active Substance: DILTIAZEM
  6. EPOPROSTENOL SODIUM. [Suspect]
     Active Substance: EPOPROSTENOL SODIUM
     Indication: PULMONARY HYPERTENSION
     Route: 065
     Dates: start: 20150302
  7. ADCIRCA [Concomitant]
     Active Substance: TADALAFIL
  8. BIOTIN [Concomitant]
     Active Substance: BIOTIN
  9. METAMUCIL [Concomitant]
     Active Substance: PLANTAGO SEED

REACTIONS (1)
  - Hospitalisation [Unknown]
